FAERS Safety Report 18984086 (Version 1)
Quarter: 2021Q1

REPORT INFORMATION
  Report Type: Report from Study
  Country: CA (occurrence: CA)
  Receive Date: 20210308
  Receipt Date: 20210308
  Transmission Date: 20210420
  Serious: Yes (Other)
  Sender: FDA-Public Use
  Company Number: CA-HLS-202000089

PATIENT
  Sex: Male

DRUGS (6)
  1. SENOKOT 8.6 MG [Concomitant]
     Route: 065
  2. XYLAC 25 MG [Concomitant]
     Route: 065
  3. CLOZARIL [Suspect]
     Active Substance: CLOZAPINE
     Indication: PRODUCT USED FOR UNKNOWN INDICATION
     Route: 048
     Dates: start: 20100129
  4. PANTOPRAZOLE MAGNESIUM 40 MG [Concomitant]
     Route: 065
  5. ESCITALOPRAM 20 MG [Concomitant]
     Active Substance: ESCITALOPRAM OXALATE
     Route: 065
  6. DOCUSATE SODIUM. [Concomitant]
     Active Substance: DOCUSATE SODIUM
     Route: 065

REACTIONS (7)
  - Substance use disorder [Unknown]
  - Obsessive-compulsive disorder [Unknown]
  - White blood cell count increased [Unknown]
  - Schizophrenia [Unknown]
  - Gastrooesophageal reflux disease [Unknown]
  - Constipation [Unknown]
  - Salivary hypersecretion [Unknown]
